FAERS Safety Report 17855267 (Version 1)
Quarter: 2020Q2

REPORT INFORMATION
  Report Type: Spontaneous
  Country: US (occurrence: US)
  Receive Date: 20200603
  Receipt Date: 20200603
  Transmission Date: 20200714
  Serious: Yes (Life-Threatening)
  Sender: FDA-Public Use
  Company Number: None

PATIENT

DRUGS (1)
  1. SPIRONOLACTONE ORAL TABLET [Suspect]
     Active Substance: SPIRONOLACTONE

REACTIONS (9)
  - Dyspepsia [None]
  - Headache [None]
  - Nausea [None]
  - Seizure [None]
  - Muscle spasms [None]
  - Dry throat [None]
  - Abdominal pain upper [None]
  - Dry mouth [None]
  - Tongue biting [None]

NARRATIVE: CASE EVENT DATE: 20200514
